FAERS Safety Report 14524469 (Version 3)
Quarter: 2018Q1

REPORT INFORMATION
  Report Type: Spontaneous
  Country: TR (occurrence: TR)
  Receive Date: 20180213
  Receipt Date: 20180302
  Transmission Date: 20180509
  Serious: Yes (Death, Hospitalization, Other)
  Sender: FDA-Public Use
  Company Number: TR-B.I. PHARMACEUTICALS,INC./RIDGEFIELD-2018-BI-006673

PATIENT
  Age: 76 Year
  Sex: Female
  Weight: 70 kg

DRUGS (1)
  1. PRADAXA [Suspect]
     Active Substance: DABIGATRAN ETEXILATE MESYLATE
     Indication: ATRIAL FIBRILLATION
     Route: 048
     Dates: start: 20180119, end: 20180125

REACTIONS (7)
  - Organ failure [Fatal]
  - Injection site haemorrhage [Recovered/Resolved]
  - Gastrointestinal haemorrhage [Recovered/Resolved]
  - Respiratory failure [Fatal]
  - Intra-abdominal haemorrhage [Recovered/Resolved]
  - Peritoneal haemorrhage [Recovered/Resolved]
  - Mouth haemorrhage [Recovered/Resolved]

NARRATIVE: CASE EVENT DATE: 20180125
